FAERS Safety Report 15390720 (Version 1)
Quarter: 2018Q3

REPORT INFORMATION
  Report Type: Spontaneous
  Country: US (occurrence: US)
  Receive Date: 20180917
  Receipt Date: 20180917
  Transmission Date: 20181010
  Serious: Yes (Other)
  Sender: FDA-Public Use
  Company Number: US-SA-2018SA001626

PATIENT
  Age: 45 Year
  Sex: Female
  Weight: 91 kg

DRUGS (4)
  1. TAXOTERE [Suspect]
     Active Substance: DOCETAXEL
     Indication: BREAST CANCER FEMALE
     Dosage: UNK UNK, Q3W
     Route: 042
     Dates: start: 20120531, end: 20120531
  2. NEOSAR [Concomitant]
     Active Substance: CYCLOPHOSPHAMIDE
  3. TAXOTERE [Suspect]
     Active Substance: DOCETAXEL
     Dosage: UNK UNK,QCY
     Route: 042
     Dates: start: 201209, end: 201209
  4. CYTOXAN [Concomitant]
     Active Substance: CYCLOPHOSPHAMIDE
     Dosage: UNK

REACTIONS (6)
  - Alopecia [Recovering/Resolving]
  - Emotional distress [Unknown]
  - Anxiety [Unknown]
  - Pain [Unknown]
  - Psychological trauma [Unknown]
  - Impaired quality of life [Unknown]
